FAERS Safety Report 6445677-4 (Version None)
Quarter: 2009Q4

REPORT INFORMATION
  Report Type: 
  Country: None (occurrence: None)
  Receive Date: 20091118
  Receipt Date: 20091118
  Transmission Date: 20100525
  Serious: Yes (Death, Hospitalization)
  Sender: FDA-Public Use
  Company Number: None

PATIENT
  Age: 53 Year
  Sex: Male
  Weight: 68.9467 kg

DRUGS (1)
  1. AMIODARONE HCL [Suspect]
     Indication: ARRHYTHMIA
     Dosage: 200 MG BID PO
     Route: 048
     Dates: start: 20070207, end: 20090811

REACTIONS (8)
  - BLOOD GLUCOSE INCREASED [None]
  - DRUG TOXICITY [None]
  - HYPERTHYROIDISM [None]
  - IRRITABILITY [None]
  - PULMONARY OEDEMA [None]
  - TREATMENT FAILURE [None]
  - TREMOR [None]
  - WEIGHT DECREASED [None]
